FAERS Safety Report 6355973-7 (Version None)
Quarter: 2009Q3

REPORT INFORMATION
  Report Type: 
  Country: None (occurrence: None)
  Receive Date: 20090915
  Receipt Date: 20090904
  Transmission Date: 20100115
  Serious: Yes (Death)
  Sender: FDA-Public Use
  Company Number: US-MYLANLABS-2009S1015914

PATIENT
  Age: 23 Year
  Sex: Male

DRUGS (4)
  1. OPANA [Suspect]
     Route: 045
  2. TRAMADOL HYDROCHLORIDE [Suspect]
     Indication: PAIN
  3. LORTAB [Suspect]
     Indication: PAIN
  4. ALPRAZOLAM [Suspect]
     Indication: BIPOLAR DISORDER

REACTIONS (7)
  - BRAIN OEDEMA [None]
  - DRUG TOXICITY [None]
  - INCORRECT ROUTE OF DRUG ADMINISTRATION [None]
  - OVERDOSE [None]
  - PETECHIAE [None]
  - THYMUS DISORDER [None]
  - UNRESPONSIVE TO STIMULI [None]
